FAERS Safety Report 7879158-8 (Version None)
Quarter: 2011Q4

REPORT INFORMATION
  Report Type: 
  Country: None (occurrence: None)
  Receive Date: 20111101
  Receipt Date: 20111025
  Transmission Date: 20120403
  Serious: Yes (Death, Hospitalization)
  Sender: FDA-Public Use
  Company Number: US-ACTELION-A-US2011-53309

PATIENT

DRUGS (2)
  1. PLAVIX [Concomitant]
  2. TRACLEER [Suspect]
     Indication: VASCULITIS
     Dosage: UNK
     Route: 048
     Dates: start: 20110115

REACTIONS (2)
  - DEHYDRATION [None]
  - DEATH [None]
